FAERS Safety Report 9689845 (Version 1)
Quarter: 2013Q4

REPORT INFORMATION
  Report Type: Spontaneous
  Country: FR (occurrence: FR)
  Receive Date: 20131115
  Receipt Date: 20131115
  Transmission Date: 20140711
  Serious: Yes (Hospitalization, Other)
  Sender: FDA-Public Use
  Company Number: FR-009507513-1311FRA004495

PATIENT
  Age: 76 Year
  Sex: Male

DRUGS (4)
  1. SINEMET 100 MG / 10 MG COMPRIME SECABLE [Suspect]
     Indication: PARKINSON^S DISEASE
     Dosage: 5 DF, QD
     Route: 048
  2. NEUPRO [Suspect]
     Indication: PARKINSON^S DISEASE
     Dosage: 1 DF, QD
     Route: 062
     Dates: start: 201306, end: 20130706
  3. COVERAM [Suspect]
     Indication: HYPERTENSION
     Dosage: 1 DF, QD
     Route: 048
  4. AZILECT [Suspect]
     Indication: PARKINSON^S DISEASE
     Dosage: 1 DF, QD
     Route: 048

REACTIONS (3)
  - Malaise [Recovered/Resolved]
  - Loss of consciousness [Recovered/Resolved]
  - Orthostatic hypotension [Recovered/Resolved]
